FAERS Safety Report 4591549-X (Version None)
Quarter: 2005Q1

REPORT INFORMATION
  Report Type: 
  Country: None (occurrence: None)
  Receive Date: 20050223
  Receipt Date: 20050223
  Transmission Date: 20050727
  Serious: Yes (Death, Hospitalization)
  Sender: FDA-Public Use
  Company Number: None

PATIENT
  Age: 60 Year
  Sex: Male

DRUGS (6)
  1. TAXOL [Suspect]
     Indication: PANCREATIC CARCINOMA
     Dosage: 76MG X 1 38MG X 3
     Dates: start: 20011210, end: 20020114
  2. GEMZAR [Suspect]
     Indication: PANCREATIC CARCINOMA
     Dosage: 143 MG X 172MG X 3
     Dates: start: 20011210, end: 20020114
  3. DECADRON [Concomitant]
  4. TAGAMET [Concomitant]
  5. BENADRYL [Concomitant]
  6. ZOFRAN [Concomitant]

REACTIONS (6)
  - COMA [None]
  - HYPOTENSION [None]
  - LETHARGY [None]
  - PNEUMONIA ASPIRATION [None]
  - RESPIRATORY FAILURE [None]
  - SEPSIS [None]
